FAERS Safety Report 20000925 (Version 1)
Quarter: 2021Q4

REPORT INFORMATION
  Report Type: Spontaneous
  Country: US (occurrence: US)
  Receive Date: 20211027
  Receipt Date: 20211027
  Transmission Date: 20220303
  Serious: No
  Sender: FDA-Public Use
  Company Number: US-TEVA-2021-US-1968232

PATIENT
  Sex: Female

DRUGS (1)
  1. BRINZOLAMIDE [Suspect]
     Active Substance: BRINZOLAMIDE
     Indication: Glaucoma
     Dosage: SUSPENSION - OPHTHALMIC
     Route: 047

REACTIONS (4)
  - Eye pain [Unknown]
  - Drug delivery system malfunction [Unknown]
  - Product packaging issue [Unknown]
  - Product dose omission issue [Unknown]
